FAERS Safety Report 8250448-2 (Version None)
Quarter: 2012Q2

REPORT INFORMATION
  Report Type: 
  Country: None (occurrence: None)
  Receive Date: 20120402
  Receipt Date: 20120329
  Transmission Date: 20120825
  Serious: Yes (Hospitalization, Other)
  Sender: FDA-Public Use
  Company Number: CA-NAPPMUNDI-CAN-2012-0002778

PATIENT
  Sex: Female

DRUGS (8)
  1. XANAX [Suspect]
     Indication: PRODUCT USED FOR UNKNOWN INDICATION
  2. MUSCLE RELAXANTS [Suspect]
     Indication: PRODUCT USED FOR UNKNOWN INDICATION
     Dosage: UNK
     Route: 065
  3. OXYCONTIN [Suspect]
     Indication: PRODUCT USED FOR UNKNOWN INDICATION
  4. SYNTHROID [Suspect]
     Indication: PRODUCT USED FOR UNKNOWN INDICATION
     Dosage: UNK
     Route: 065
  5. HYDROMORPHONE HCL [Suspect]
     Indication: PRODUCT USED FOR UNKNOWN INDICATION
     Dosage: UNK
     Route: 065
  6. ANTIDEPRESSANTS [Suspect]
  7. PERCOCET [Suspect]
     Indication: PRODUCT USED FOR UNKNOWN INDICATION
     Dosage: UNK
     Route: 065
  8. ATIVAN [Suspect]
     Indication: PRODUCT USED FOR UNKNOWN INDICATION
     Dosage: UNK
     Route: 065

REACTIONS (10)
  - MEMORY IMPAIRMENT [None]
  - UNEVALUABLE EVENT [None]
  - ALTERED STATE OF CONSCIOUSNESS [None]
  - DRUG WITHDRAWAL SYNDROME [None]
  - SUBSTANCE ABUSE [None]
  - JUDGEMENT IMPAIRED [None]
  - MENTAL DISORDER [None]
  - DEPRESSION [None]
  - POLYSUBSTANCE DEPENDENCE [None]
  - SUICIDE ATTEMPT [None]
